FAERS Safety Report 9607403 (Version 1)
Quarter: 2013Q4

REPORT INFORMATION
  Report Type: Spontaneous
  Country: US (occurrence: None)
  Receive Date: 20131007
  Receipt Date: 20131007
  Transmission Date: 20140711
  Serious: No
  Sender: FDA-Public Use
  Company Number: None

PATIENT
  Age: 51 Year
  Sex: Male
  Weight: 67.13 kg

DRUGS (2)
  1. RAPAFLO [Suspect]
     Indication: PAIN
     Dosage: 1 PILL ONCE DAILY  TAKEN BY MOUTH
     Route: 048
     Dates: start: 20120718, end: 20120718
  2. RAPAFLO [Suspect]
     Indication: RENAL STONE REMOVAL
     Dosage: 1 PILL ONCE DAILY  TAKEN BY MOUTH
     Route: 048
     Dates: start: 20120718, end: 20120718

REACTIONS (8)
  - Nasal congestion [None]
  - Abdominal distension [None]
  - Dry mouth [None]
  - Headache [None]
  - Insomnia [None]
  - Asthenia [None]
  - Fatigue [None]
  - Respiratory disorder [None]
